FAERS Safety Report 6265952-6 (Version None)
Quarter: 2009Q3

REPORT INFORMATION
  Report Type: 
  Country: None (occurrence: None)
  Receive Date: 20090709
  Receipt Date: 20090709
  Transmission Date: 20100115
  Serious: Yes (Life-Threatening, Hospitalization)
  Sender: FDA-Public Use
  Company Number: None

PATIENT
  Age: 50 Year
  Sex: Male
  Weight: 92.9874 kg

DRUGS (1)
  1. GEMFIBROZIL [Suspect]
     Indication: BLOOD TRIGLYCERIDES INCREASED
     Dosage: 1200MG 2X'S/DAY
     Dates: start: 20081208, end: 20090102

REACTIONS (12)
  - ARTHRALGIA [None]
  - BACK PAIN [None]
  - CLUSTER HEADACHE [None]
  - DEPRESSION [None]
  - HEADACHE [None]
  - HUMERUS FRACTURE [None]
  - LETHARGY [None]
  - MUSCLE FATIGUE [None]
  - MUSCLE INJURY [None]
  - NAUSEA [None]
  - SUICIDE ATTEMPT [None]
  - VOMITING [None]
